FAERS Safety Report 4968235-7 (Version None)
Quarter: 2006Q2

REPORT INFORMATION
  Report Type: 
  Country: None (occurrence: None)
  Receive Date: 20060405
  Receipt Date: 20060307
  Transmission Date: 20061013
  Serious: Yes (Death)
  Sender: FDA-Public Use
  Company Number: 2006043916

PATIENT

DRUGS (5)
  1. ZELDOX (CAPSULES) (ZIPRASIDONE) [Suspect]
     Indication: SCHIZOPHRENIA, PARANOID TYPE
     Dosage: 160 MG (DAILY), ORAL
     Route: 048
     Dates: start: 20011217
  2. EFFEXOR [Suspect]
     Indication: SCHIZOPHRENIA, PARANOID TYPE
     Dosage: 150 MG (DAILY), ORAL
     Route: 048
  3. REMERON [Suspect]
     Indication: SCHIZOPHRENIA, PARANOID TYPE
     Dosage: 15 MG (DAILY), ORAL
     Route: 048
     Dates: start: 20020127
  4. MANDOLGIN (TRAMADOL) [Concomitant]
  5. NOZINAN (LEVOMEPROMAZINE) [Concomitant]

REACTIONS (1)
  - SUDDEN DEATH [None]
